FAERS Safety Report 5147040-5 (Version None)
Quarter: 2006Q4

REPORT INFORMATION
  Report Type: 
  Country: None (occurrence: None)
  Receive Date: 20061109
  Receipt Date: 20060814
  Transmission Date: 20070319
  Serious: Yes (Death, Hospitalization)
  Sender: FDA-Public Use
  Company Number: US-BRISTOL-MYERS SQUIBB COMPANY-13474861

PATIENT
  Sex: Male

DRUGS (5)
  1. CETUXIMAB [Suspect]
     Indication: NON-SMALL CELL LUNG CANCER
     Route: 042
     Dates: start: 20060608, end: 20060608
  2. CARBOPLATIN [Suspect]
     Indication: NON-SMALL CELL LUNG CANCER
     Route: 042
     Dates: start: 20060525, end: 20060525
  3. PACLITAXEL [Suspect]
     Indication: NON-SMALL CELL LUNG CANCER
     Route: 042
     Dates: start: 20060525, end: 20060525
  4. FLEXERIL [Concomitant]
     Dates: end: 20060705
  5. NORCO [Concomitant]
     Dates: end: 20060705

REACTIONS (8)
  - ARRHYTHMIA [None]
  - ASTHENIA [None]
  - CONVULSION [None]
  - DECREASED APPETITE [None]
  - MALIGNANT NEOPLASM PROGRESSION [None]
  - NODAL RHYTHM [None]
  - SINUS ARREST [None]
  - SYNCOPE [None]
